FAERS Safety Report 10412293 (Version 1)
Quarter: 2014Q2

REPORT INFORMATION
  Report Type: Spontaneous
  Country: US (occurrence: None)
  Receive Date: 20140604
  Receipt Date: 20140604
  Transmission Date: 20141212
  Serious: Yes (Hospitalization)
  Sender: FDA-Public Use
  Company Number: 20130123VANCO3882

PATIENT
  Age: 89 Year
  Sex: Male

DRUGS (2)
  1. VANCOCIN [Suspect]
     Indication: CLOSTRIDIUM DIFFICILE INFECTION
     Route: 048
     Dates: start: 20121231, end: 20130107
  2. AVELOX (MOXIFLOXACIN HYDROCHLORIDE) [Concomitant]

REACTIONS (1)
  - Clostridium difficile infection [None]
